FAERS Safety Report 9608857 (Version 2)
Quarter: 2013Q4

REPORT INFORMATION
  Report Type: Spontaneous
  Country: US (occurrence: US)
  Receive Date: 20131009
  Receipt Date: 20131009
  Transmission Date: 20140711
  Serious: Yes (Hospitalization)
  Sender: FDA-Public Use
  Company Number: US-BAXTER-2013BAX012715

PATIENT
  Age: 50 Year
  Sex: Male

DRUGS (2)
  1. DIANEAL LOW CALCIUM [Suspect]
     Indication: PERITONEAL DIALYSIS
     Route: 033
     Dates: start: 201208
  2. EXTRANEAL [Suspect]
     Indication: PERITONEAL DIALYSIS
     Route: 033
     Dates: start: 201208

REACTIONS (4)
  - Peritonitis [Recovering/Resolving]
  - Peritoneal dialysis complication [Recovered/Resolved]
  - Discomfort [Recovered/Resolved]
  - Procedural pain [Recovered/Resolved]
